FAERS Safety Report 10066648 (Version 1)
Quarter: 2014Q2

REPORT INFORMATION
  Report Type: Spontaneous
  Country: FR (occurrence: FR)
  Receive Date: 20140408
  Receipt Date: 20140408
  Transmission Date: 20141212
  Serious: Yes (Death, Other)
  Sender: FDA-Public Use
  Company Number: FR-GILEAD-2014-0099026

PATIENT
  Sex: Male

DRUGS (11)
  1. SOFOSBUVIR [Suspect]
     Indication: HEPATITIS C
     Dosage: 400 MG, QD
     Route: 048
     Dates: start: 20140130
  2. PEGASYS [Suspect]
     Indication: HEPATITIS C
     Dosage: 180 ?G, Q1WK
     Route: 058
     Dates: start: 20140130
  3. RIBAVIRINE [Suspect]
     Indication: HEPATITIS C
     Dosage: 1000 MG, QD
     Route: 048
     Dates: start: 20140130
  4. DAIVOBET [Concomitant]
  5. DERMOVAL                           /00337102/ [Concomitant]
  6. CARDENSIEL [Concomitant]
  7. SPIRONOLACTONE [Concomitant]
  8. ATORVASTATINE                      /01326101/ [Concomitant]
  9. PANTOPRAZOLE [Concomitant]
  10. CORDIPATCH [Concomitant]
  11. PLAVIX [Concomitant]

REACTIONS (2)
  - Death [Fatal]
  - Psoriasis [Unknown]
